FAERS Safety Report 7293149-X (Version None)
Quarter: 2011Q1

REPORT INFORMATION
  Report Type: 
  Country: None (occurrence: None)
  Receive Date: 20110210
  Receipt Date: 20110210
  Transmission Date: 20110831
  Serious: Yes (Other)
  Sender: FDA-Public Use
  Company Number: None

PATIENT
  Age: 36 Year
  Sex: Female
  Weight: 56.6996 kg

DRUGS (1)
  1. LEVAQUIN [Suspect]
     Indication: TONSILLITIS
     Dosage: 750MG ONCE A DAY PO
     Route: 048
     Dates: start: 20110120, end: 20110124

REACTIONS (12)
  - MUSCULAR WEAKNESS [None]
  - URTICARIA [None]
  - ARTHRALGIA [None]
  - DIZZINESS [None]
  - PAIN [None]
  - BODY TEMPERATURE FLUCTUATION [None]
  - POLYNEUROPATHY [None]
  - MUSCLE TWITCHING [None]
  - FATIGUE [None]
  - CHILLS [None]
  - NIGHT SWEATS [None]
  - TENDONITIS [None]
